FAERS Safety Report 24693859 (Version 2)
Quarter: 2024Q4

REPORT INFORMATION
  Report Type: Report from Study
  Country: US (occurrence: US)
  Receive Date: 20241204
  Receipt Date: 20241218
  Transmission Date: 20250114
  Serious: Yes (Hospitalization)
  Sender: ABBVIE
  Company Number: US-ABBVIE-6003306

PATIENT
  Age: 75 Year
  Sex: Male
  Weight: 59.42 kg

DRUGS (5)
  1. HUMIRA [Suspect]
     Active Substance: ADALIMUMAB
     Indication: Psoriasis
     Dosage: CITRATE FREE?FORM STRENGTH: 40 MILLIGRAM?START DATE TEXT: JULY OR AUGUST 2024?LAST ADMINISTRATION...
     Route: 058
     Dates: start: 202407
  2. HUMIRA [Suspect]
     Active Substance: ADALIMUMAB
     Dosage: CITRATE FREE?FORM STRENGTH: 40 MILLIGRAM?START DATE TEXT: 5 OR 6 YEARS AGO
     Route: 058
     Dates: start: 2018, end: 202402
  3. HUMIRA [Suspect]
     Active Substance: ADALIMUMAB
     Route: 058
     Dates: start: 20241111
  4. SULFASALAZINE [Concomitant]
     Active Substance: SULFASALAZINE
     Indication: Gastrointestinal disorder
  5. LORTAB [Concomitant]
     Active Substance: ACETAMINOPHEN\HYDROCODONE BITARTRATE
     Indication: Back pain
     Route: 065

REACTIONS (7)
  - Peripheral swelling [Recovering/Resolving]
  - Psoriasis [Recovering/Resolving]
  - Gait disturbance [Recovering/Resolving]
  - Hypoaesthesia [Recovering/Resolving]
  - Skin discolouration [Recovering/Resolving]
  - Parkinson^s disease [Unknown]
  - Fall [Unknown]

NARRATIVE: CASE EVENT DATE: 20240201
